FAERS Safety Report 7772317-4 (Version None)
Quarter: 2011Q3

REPORT INFORMATION
  Report Type: 
  Country: None (occurrence: None)
  Receive Date: 20110922
  Receipt Date: 20100412
  Transmission Date: 20111222
  Serious: Yes (Hospitalization)
  Sender: FDA-Public Use
  Company Number: US-ASTRAZENECA-2009UW19041

PATIENT
  Age: 373 Month
  Sex: Male
  Weight: 93 kg

DRUGS (12)
  1. SEROQUEL [Suspect]
     Route: 048
     Dates: start: 20020101
  2. DEPAKOTE [Concomitant]
     Indication: SCHIZOPHRENIA
     Dosage: 500 TO 1500 MG
     Route: 048
     Dates: start: 20060505
  3. MAGNESIUM OXIDE [Concomitant]
     Route: 048
     Dates: start: 20080609
  4. ZOCOR [Concomitant]
     Indication: HYPERTRIGLYCERIDAEMIA
     Dates: start: 20080609
  5. ABILIFY [Concomitant]
     Indication: SCHIZOPHRENIA
     Dates: start: 20060505
  6. LORATADINE [Concomitant]
     Route: 048
     Dates: start: 20080609
  7. HYDROXYZINE [Concomitant]
     Dates: start: 20060505
  8. SENOKOT [Concomitant]
     Indication: CONSTIPATION
     Dosage: 2 TABLETS AT BEDTIME AS NEEDED
     Route: 048
     Dates: start: 20080609
  9. COLACE [Concomitant]
     Indication: CONSTIPATION
     Dosage: PRN
     Route: 048
     Dates: start: 20080609
  10. PREDNISONE [Concomitant]
     Dates: start: 20060505
  11. TRICOR [Concomitant]
     Indication: HYPERTRIGLYCERIDAEMIA
     Route: 048
     Dates: start: 20060101
  12. LIPITOR [Concomitant]
     Indication: HYPERLIPIDAEMIA
     Dates: start: 20060505

REACTIONS (2)
  - TYPE 2 DIABETES MELLITUS [None]
  - DIABETES MELLITUS [None]
